FAERS Safety Report 25552713 (Version 1)
Quarter: 2025Q3

REPORT INFORMATION
  Report Type: Spontaneous
  Country: EU (occurrence: EU)
  Receive Date: 20250715
  Receipt Date: 20250715
  Transmission Date: 20251020
  Serious: Yes (Other)
  Sender: CELLTRION
  Company Number: EU-AMGEN-POLSP2025044857

PATIENT

DRUGS (1)
  1. ADALIMUMAB [Suspect]
     Active Substance: ADALIMUMAB
     Indication: Crohn^s disease
     Route: 065

REACTIONS (4)
  - Pyoderma gangrenosum [Not Recovered/Not Resolved]
  - Crohn^s disease [Unknown]
  - Drug specific antibody present [Unknown]
  - Drug ineffective [Unknown]
